FAERS Safety Report 9660944 (Version 2)
Quarter: 2013Q4

REPORT INFORMATION
  Report Type: Spontaneous
  Country: SK (occurrence: SK)
  Receive Date: 20131031
  Receipt Date: 20131223
  Transmission Date: 20140711
  Serious: Yes (Death)
  Sender: FDA-Public Use
  Company Number: SK-CELGENEUS-260-50794-13103949

PATIENT
  Age: 64 Year
  Sex: Male

DRUGS (2)
  1. VIDAZA [Suspect]
     Indication: MYELODYSPLASTIC SYNDROME
     Route: 065
     Dates: start: 201103, end: 201107
  2. VIDAZA [Suspect]
     Indication: MYELOPROLIFERATIVE DISORDER
     Route: 065
     Dates: start: 201112, end: 201206

REACTIONS (6)
  - Cardiopulmonary failure [Fatal]
  - Bronchopneumonia [Fatal]
  - Viral infection [Unknown]
  - Splenomegaly [Unknown]
  - Leukocytosis [Unknown]
  - Haemoglobin decreased [Unknown]
